FAERS Safety Report 4738872-3 (Version None)
Quarter: 2005Q3

REPORT INFORMATION
  Report Type: 
  Country: None (occurrence: None)
  Receive Date: 20050809
  Receipt Date: 20050420
  Transmission Date: 20060218
  Serious: Yes (Hospitalization)
  Sender: FDA-Public Use
  Company Number: DE-MERCK-0504DEU00153

PATIENT
  Age: 68 Year
  Sex: Female

DRUGS (5)
  1. VIOXX [Suspect]
     Indication: FEMORAL NECK FRACTURE
     Route: 048
     Dates: start: 20040729, end: 20040901
  2. VIOXX [Suspect]
     Route: 048
     Dates: start: 20020318
  3. DIPYRONE [Concomitant]
     Route: 065
  4. AMITRIPTYLINE HYDROCHLORIDE [Concomitant]
     Route: 065
  5. PROMETHAZINE [Concomitant]
     Route: 065

REACTIONS (8)
  - ACUTE PSYCHOSIS [None]
  - COMMINUTED FRACTURE [None]
  - FEMORAL NECK FRACTURE [None]
  - HEADACHE [None]
  - HERPES ZOSTER [None]
  - MAJOR DEPRESSION [None]
  - MALAISE [None]
  - SUICIDAL IDEATION [None]
